FAERS Safety Report 24733599 (Version 1)
Quarter: 2024Q4

REPORT INFORMATION
  Report Type: Spontaneous
  Country: US (occurrence: US)
  Receive Date: 20241213
  Receipt Date: 20241213
  Transmission Date: 20250115
  Serious: No
  Sender: NOVO NORDISK
  Company Number: US-NOVOPROD-1216885

PATIENT
  Sex: Male

DRUGS (1)
  1. LEVEMIR [Suspect]
     Active Substance: INSULIN DETEMIR
     Indication: Diabetes mellitus
     Dosage: 60 IU QD
     Route: 058
     Dates: start: 2023

REACTIONS (4)
  - Feeling abnormal [Unknown]
  - Ear infection [Unknown]
  - Hyperhidrosis [Unknown]
  - Blood glucose increased [Unknown]
